FAERS Safety Report 6274769-8 (Version None)
Quarter: 2009Q3

REPORT INFORMATION
  Report Type: 
  Country: None (occurrence: None)
  Receive Date: 20090721
  Receipt Date: 20070601
  Transmission Date: 20100115
  Serious: Yes (Other)
  Sender: FDA-Public Use
  Company Number: US-ASTRAZENECA-2006UW26191

PATIENT
  Age: 664 Month
  Sex: Male
  Weight: 109.8 kg

DRUGS (14)
  1. SEROQUEL [Suspect]
     Indication: SLEEP DISORDER
     Route: 048
     Dates: start: 20020801
  2. SEROQUEL [Suspect]
     Indication: POST-TRAUMATIC STRESS DISORDER
     Route: 048
     Dates: start: 20020801
  3. SEROQUEL [Suspect]
     Dosage: 100 - 600 MG
     Route: 048
     Dates: start: 20030410
  4. SEROQUEL [Suspect]
     Dosage: 100 - 600 MG
     Route: 048
     Dates: start: 20030410
  5. HALDOL [Concomitant]
  6. RISPERDAL [Concomitant]
     Indication: PSYCHOTIC DISORDER
     Dosage: 0.1 MG - 2 MG
     Route: 048
     Dates: start: 20020424
  7. RISPERDAL [Concomitant]
     Indication: POST-TRAUMATIC STRESS DISORDER
     Dosage: 0.1 MG - 2 MG
     Route: 048
     Dates: start: 20020424
  8. ZANTAC [Concomitant]
     Route: 048
     Dates: start: 20001004
  9. CLONAZEPAM [Concomitant]
     Indication: ANXIETY
     Dosage: 1 MG - 2 MG
     Dates: start: 19971114
  10. CLONAZEPAM [Concomitant]
     Indication: POST-TRAUMATIC STRESS DISORDER
     Dosage: 1 MG - 2 MG
     Dates: start: 19971114
  11. WELLBUTRIN [Concomitant]
     Indication: DEPRESSION
     Dosage: 100 - 150 MG
     Dates: start: 20041213
  12. WELLBUTRIN [Concomitant]
     Indication: POST-TRAUMATIC STRESS DISORDER
     Dosage: 100 - 150 MG
     Dates: start: 20041213
  13. SERTRALINE [Concomitant]
     Dosage: 50 - 200 MG
     Route: 048
     Dates: start: 19971114
  14. TRAZODONE [Concomitant]
     Dosage: 50 - 150 MG
     Route: 048
     Dates: start: 19971114

REACTIONS (5)
  - DIABETIC NEUROPATHY [None]
  - GLUCOSE TOLERANCE IMPAIRED [None]
  - PAIN IN EXTREMITY [None]
  - TYPE 1 DIABETES MELLITUS [None]
  - TYPE 2 DIABETES MELLITUS [None]
